FAERS Safety Report 7763747-5 (Version None)
Quarter: 2011Q3

REPORT INFORMATION
  Report Type: 
  Country: None (occurrence: None)
  Receive Date: 20110921
  Receipt Date: 20110918
  Transmission Date: 20111222
  Serious: Yes (Other)
  Sender: FDA-Public Use
  Company Number: US-SHIRE-ALL1-2011-03453

PATIENT
  Age: 14 Year
  Sex: Male
  Weight: 45.351 kg

DRUGS (3)
  1. ADDERALL XR 10 [Suspect]
     Indication: ATTENTION DEFICIT/HYPERACTIVITY DISORDER
     Dosage: 20 MG, 1X/DAY:QD
     Route: 048
     Dates: start: 20110801
  2. LANTUS [Concomitant]
     Indication: DIABETES MELLITUS
     Dosage: UNK UNK, 1X/DAY:QD
     Route: 058
  3. ADDERALL XR 10 [Suspect]
     Dosage: 10 MG, UNK
     Route: 048
     Dates: start: 20100101, end: 20110101

REACTIONS (2)
  - CONVULSION [None]
  - HYPOGLYCAEMIA [None]
